FAERS Safety Report 11119077 (Version 2)
Quarter: 2015Q3

REPORT INFORMATION
  Report Type: Spontaneous
  Country: US (occurrence: US)
  Receive Date: 20150518
  Receipt Date: 20150710
  Transmission Date: 20151125
  Serious: Yes (Other)
  Sender: FDA-Public Use
  Company Number: US-PFIZER INC-2015163860

PATIENT
  Age: 58 Year
  Sex: Female

DRUGS (19)
  1. ADRIAMYCIN [Suspect]
     Active Substance: DOXORUBICIN HYDROCHLORIDE
     Dosage: UNK (6 COURSES)
  2. AVASTIN [Suspect]
     Active Substance: BEVACIZUMAB
     Dosage: UNK
  3. MAGNESIUM OXIDE. [Concomitant]
     Active Substance: MAGNESIUM OXIDE
     Dosage: 400 MG, 1X/DAY (1 IN 1 D)
     Route: 048
  4. PANTOPRAZOLE SODIUM. [Concomitant]
     Active Substance: PANTOPRAZOLE SODIUM
     Dosage: 40 MG, 1X/DAY
  5. LIDOCAINE. [Concomitant]
     Active Substance: LIDOCAINE
     Dosage: UNK (ON FOR 12 HOURS, OFF FOR 12 HOURS (5 %))
     Route: 061
     Dates: start: 20141222
  6. OXYCODONE [Concomitant]
     Active Substance: OXYCODONE
     Indication: PAIN MANAGEMENT
     Dosage: 1 DF, AS NEEDED (.5MG/325MG, EVERY 4-6 HOURS)
     Route: 048
  7. TAMSULOSIN HCL [Concomitant]
     Active Substance: TAMSULOSIN
     Dosage: 0.4 MG, (0.4MG , 1 IN 1 PM)
     Route: 048
     Dates: start: 20140521
  8. ZOFRAN [Concomitant]
     Active Substance: ONDANSETRON HYDROCHLORIDE
     Dosage: 8 MG, AS NEEDED (EVERY 6 HOURS (8 MG,1 AS REQUIRED))
     Route: 048
  9. CYTOXAN [Suspect]
     Active Substance: CYCLOPHOSPHAMIDE
     Indication: BREAST CANCER
     Dosage: UNK, CYCLIC
  10. GEMZAR [Suspect]
     Active Substance: GEMCITABINE HYDROCHLORIDE
     Indication: BREAST CANCER
     Dosage: UNK
  11. TAXOL [Suspect]
     Active Substance: PACLITAXEL
     Indication: BREAST CANCER
  12. ATIVAN [Concomitant]
     Active Substance: LORAZEPAM
     Indication: ANXIETY
     Dosage: 0.5 MG, AS NEEDED (2 TAB, 3 TIMES PER DAY )
     Route: 048
  13. TAXOTERE [Suspect]
     Active Substance: DOCETAXEL
     Indication: BREAST CANCER
     Dosage: UNK, CYCLIC
  14. CYTOXAN [Suspect]
     Active Substance: CYCLOPHOSPHAMIDE
     Dosage: UNK (6 COURSES,1G VIAL)
  15. NAVELBINE [Suspect]
     Active Substance: VINORELBINE TARTRATE
     Indication: BREAST CANCER
     Dosage: 42.5 MG, CYCLIC (25 MG/M3) (CYCLICALLY ON DAYS 1 AND 8)
     Dates: start: 20141110, end: 20150323
  16. HALAVEN [Suspect]
     Active Substance: ERIBULIN MESYLATE
     Dosage: UNK
  17. OXYCONTIN [Concomitant]
     Active Substance: OXYCODONE HYDROCHLORIDE
     Dosage: 15 MG, 2X/DAY (30 MG (15 MG,1 IN 12 HR))
     Route: 048
     Dates: start: 20141222
  18. ADRIAMYCIN [Suspect]
     Active Substance: DOXORUBICIN HYDROCHLORIDE
     Indication: BREAST CANCER
     Dosage: UNK, CYCLIC (6 COURSES)
  19. ABRAXANE [Suspect]
     Active Substance: PACLITAXEL
     Dosage: UNK

REACTIONS (3)
  - Breast cancer [Recovering/Resolving]
  - Disease progression [Recovering/Resolving]
  - Bone marrow failure [Unknown]
